FAERS Safety Report 19035543 (Version 1)
Quarter: 2021Q1

REPORT INFORMATION
  Report Type: Report from Study
  Country: NL (occurrence: NL)
  Receive Date: 20210320
  Receipt Date: 20210320
  Transmission Date: 20210420
  Serious: Yes (Hospitalization)
  Sender: FDA-Public Use
  Company Number: NVSC2021NL060703

PATIENT
  Age: 56 Year
  Sex: Female

DRUGS (2)
  1. ZOMETA [Suspect]
     Active Substance: ZOLEDRONIC ACID
     Indication: BREAST CANCER METASTATIC
     Dosage: 1 DF, Q3MO (1.00 X PER 12 WEEKS)
     Route: 042
  2. NACL [Suspect]
     Active Substance: SODIUM CHLORIDE
     Indication: BREAST CANCER METASTATIC
     Dosage: 100 ML BAG, 200 ML COMPLETE
     Route: 065

REACTIONS (3)
  - Fall [Recovering/Resolving]
  - Off label use [Unknown]
  - Lower limb fracture [Recovering/Resolving]

NARRATIVE: CASE EVENT DATE: 20210213
